FAERS Safety Report 5092528-9 (Version None)
Quarter: 2006Q3

REPORT INFORMATION
  Report Type: 
  Country: None (occurrence: None)
  Receive Date: 20060727
  Receipt Date: 20060619
  Transmission Date: 20061208
  Serious: Yes (Other)
  Sender: FDA-Public Use
  Company Number: 2006078113

PATIENT

DRUGS (3)
  1. LYRICA [Suspect]
     Indication: DRUG USE FOR UNKNOWN INDICATION
  2. GABAPENTIN [Concomitant]
  3. LANTUS [Concomitant]

REACTIONS (1)
  - HYPOGLYCAEMIA [None]
